FAERS Safety Report 8584485-5 (Version None)
Quarter: 2012Q3

REPORT INFORMATION
  Report Type: 
  Country: None (occurrence: None)
  Receive Date: 20120810
  Receipt Date: 20120806
  Transmission Date: 20120928
  Serious: Yes (Death)
  Sender: FDA-Public Use
  Company Number: US-PFIZER INC-2012126179

PATIENT
  Age: 68 Year
  Sex: Female

DRUGS (16)
  1. KLONOPIN [Concomitant]
     Dosage: 0.5 MG, Q.H.S.
  2. TYLENOL [Concomitant]
     Dosage: 500 MG, AS NEEDED (P.R.N.)
  3. ROBITUSSIN COLD + COUGH [Concomitant]
     Indication: COUGH
     Dosage: UNK, P.R.N.
  4. VIACTIV [Concomitant]
     Dosage: UNK, B.I.D.
  5. OXYCONTIN [Concomitant]
     Dosage: 10 MG, Q. 12 H.
  6. XALKORI [Suspect]
     Dosage: 250 MG, 2X/DAY
     Route: 048
     Dates: start: 20120222, end: 20120229
  7. VITAMIN B6 [Concomitant]
     Dosage: 50 MG, 2X/DAY
  8. SENOKOT [Concomitant]
     Dosage: UNK, P.R.N.
  9. AMBIEN [Concomitant]
     Dosage: 5 MG, (1 Q.H.S)
  10. OXYCODONE HCL [Concomitant]
     Indication: PAIN
     Dosage: 10-20MG Q 3-4 H, P.R.N.
  11. CHLORASEPTIC [Concomitant]
     Dosage: UNK, P.R.N.
  12. ZOFRAN [Concomitant]
     Dosage: UNK, P.R.N.
  13. VITAMIN B-12 [Concomitant]
     Dosage: 1 MG, 1X/DAY
  14. SUDAFED 12 HOUR [Concomitant]
     Dosage: UNK, P.R.N.
  15. SALINEX NASAL DROPS [Concomitant]
     Dosage: UNK
  16. MAGIC MOUTHWASH [Concomitant]
     Dosage: UNK, P.R.N.

REACTIONS (2)
  - NON-SMALL CELL LUNG CANCER METASTATIC [None]
  - DISEASE PROGRESSION [None]
